FAERS Safety Report 15207882 (Version 3)
Quarter: 2018Q3

REPORT INFORMATION
  Report Type: Spontaneous
  Country: US (occurrence: US)
  Receive Date: 20180727
  Receipt Date: 20180803
  Transmission Date: 20181010
  Serious: Yes (Other)
  Sender: FDA-Public Use
  Company Number: US-PFIZER INC-2018300140

PATIENT
  Age: 75 Year
  Sex: Female
  Weight: 67.13 kg

DRUGS (9)
  1. NORVASC [Concomitant]
     Active Substance: AMLODIPINE BESYLATE
     Indication: BLOOD PRESSURE ABNORMAL
     Dosage: 10MG TABLET BY MOUTH ONCE A DAY
     Route: 048
     Dates: start: 2010
  2. VITAMIN D3 [Concomitant]
     Active Substance: CHOLECALCIFEROL
     Indication: VITAMIN D DEFICIENCY
     Dosage: 2000 IU BY MOUTH ONCE A DAY
     Route: 048
     Dates: start: 2010
  3. FLAGYL [Suspect]
     Active Substance: METRONIDAZOLE\METRONIDAZOLE HYDROCHLORIDE
     Dosage: 250MG BY MOUTH TWICE A DAY
     Route: 048
     Dates: end: 20180120
  4. METRONIDAZOLE. [Suspect]
     Active Substance: METRONIDAZOLE
     Indication: DIVERTICULITIS
     Dosage: UNK
     Route: 042
     Dates: start: 201801, end: 201801
  5. FLAGYL [Suspect]
     Active Substance: METRONIDAZOLE\METRONIDAZOLE HYDROCHLORIDE
     Indication: DIVERTICULITIS
     Dosage: 250MG BY MOUTH TWICE A DAY
     Route: 048
     Dates: start: 20171227
  6. FLAGYL [Suspect]
     Active Substance: METRONIDAZOLE\METRONIDAZOLE HYDROCHLORIDE
     Dosage: 200 MG, 2X/DAY
     Route: 048
  7. FISH OIL W/OMEGA?3 [Concomitant]
     Indication: BLOOD CHOLESTEROL ABNORMAL
     Dosage: 1000MG BY MOUTH TWICE A DAY
     Route: 048
     Dates: start: 2010
  8. POTASSIUM [Concomitant]
     Active Substance: POTASSIUM
     Indication: BLOOD PRESSURE MEASUREMENT
     Dosage: 20 MILL EQUIVALENT TABLET BY MOUTH ONCE A DAY
     Route: 048
     Dates: start: 2010
  9. TRIAMTERENE AND HYDROCHLOROTHIAZIDE [Concomitant]
     Active Substance: HYDROCHLOROTHIAZIDE\TRIAMTERENE
     Indication: BLOOD PRESSURE ABNORMAL
     Dosage: 37.5/25MG TABLET BY MOUTH ONCE A DAY
     Route: 048
     Dates: start: 2010

REACTIONS (9)
  - Fall [Recovering/Resolving]
  - Muscular weakness [Recovering/Resolving]
  - Muscle disorder [Recovering/Resolving]
  - Crying [Recovering/Resolving]
  - Gait disturbance [Not Recovered/Not Resolved]
  - Pain [Recovering/Resolving]
  - Hypoaesthesia [Recovering/Resolving]
  - Neuropathy peripheral [Recovering/Resolving]
  - Product use in unapproved indication [Unknown]

NARRATIVE: CASE EVENT DATE: 2018
